FAERS Safety Report 20746098 (Version 1)
Quarter: 2022Q2

REPORT INFORMATION
  Report Type: Spontaneous
  Country: US (occurrence: None)
  Receive Date: 20220425
  Receipt Date: 20220425
  Transmission Date: 20220720
  Serious: No
  Sender: FDA-Public Use
  Company Number: None

PATIENT
  Age: 61 Year
  Sex: Female
  Weight: 68.22 kg

DRUGS (11)
  1. PIQRAY [Suspect]
     Active Substance: ALPELISIB
     Indication: Breast cancer
     Dosage: FREQUENCY : DAILY;?
     Route: 048
     Dates: start: 20210324, end: 20220418
  2. ARNUITY ELLIPTA [Concomitant]
  3. DIFLUCAN [Concomitant]
  4. ELIQUIS [Concomitant]
  5. METFORMIN [Concomitant]
     Active Substance: METFORMIN HYDROCHLORIDE
  6. MONTELUKAST [Concomitant]
  7. PROMETHAZINE [Concomitant]
  8. PROTONIX [Concomitant]
  9. RESTORIL [Concomitant]
  10. TESSALON [Concomitant]
     Active Substance: BENZONATATE
  11. TRAMADOL HCL [Concomitant]

REACTIONS (1)
  - Disease progression [None]
